FAERS Safety Report 4690048-4 (Version None)
Quarter: 2005Q2

REPORT INFORMATION
  Report Type: 
  Country: None (occurrence: None)
  Receive Date: 20050614
  Receipt Date: 20050602
  Transmission Date: 20051028
  Serious: Yes (Life-Threatening)
  Sender: FDA-Public Use
  Company Number: 2005082398

PATIENT
  Sex: Male

DRUGS (1)
  1. NORVASC [Suspect]
     Indication: ILL-DEFINED DISORDER
     Dosage: (5 MG, INTERVAL: N/A), ORAL
     Route: 048
     Dates: start: 20030101

REACTIONS (2)
  - CEREBROVASCULAR ACCIDENT [None]
  - TINNITUS [None]
